FAERS Safety Report 25995604 (Version 3)
Quarter: 2025Q4

REPORT INFORMATION
  Report Type: Report from Study
  Country: US (occurrence: US)
  Receive Date: 20251104
  Receipt Date: 20251229
  Transmission Date: 20260118
  Serious: Yes (Other)
  Sender: ABBVIE
  Company Number: US-ABBVIE-6448849

PATIENT
  Age: 53 Year
  Sex: Male

DRUGS (2)
  1. RINVOQ [Suspect]
     Active Substance: UPADACITINIB
     Indication: Product used for unknown indication
     Dosage: LAST ADMIN DATE:;2025
     Route: 048
     Dates: start: 20250321
  2. RINVOQ [Suspect]
     Active Substance: UPADACITINIB
     Indication: Product used for unknown indication
     Route: 048

REACTIONS (11)
  - Exostosis [Unknown]
  - Grip strength decreased [Not Recovered/Not Resolved]
  - Sciatica [Not Recovered/Not Resolved]
  - Photosensitivity reaction [Not Recovered/Not Resolved]
  - Intervertebral disc protrusion [Unknown]
  - Hypoaesthesia [Unknown]
  - Adhesion [Unknown]
  - Procedural pain [Unknown]
  - Burning sensation [Unknown]
  - Fibromyalgia [Recovering/Resolving]
  - Diabetes mellitus [Unknown]

NARRATIVE: CASE EVENT DATE: 20250101
